FAERS Safety Report 4930654-2 (Version None)
Quarter: 2006Q1

REPORT INFORMATION
  Report Type: 
  Country: None (occurrence: None)
  Receive Date: 20060302
  Receipt Date: 20060224
  Transmission Date: 20060701
  Serious: Yes (Other)
  Sender: FDA-Public Use
  Company Number: 2006UW03232

PATIENT

DRUGS (1)
  1. SEROQUEL [Suspect]
     Dosage: THREE REDUCTIONS IN DOSE
     Route: 048

REACTIONS (3)
  - DIABETES MELLITUS [None]
  - LOSS OF CONSCIOUSNESS [None]
  - ROAD TRAFFIC ACCIDENT [None]
